FAERS Safety Report 4614408-2 (Version None)
Quarter: 2005Q1

REPORT INFORMATION
  Report Type: 
  Country: None (occurrence: None)
  Receive Date: 20050315
  Receipt Date: 20050228
  Transmission Date: 20050727
  Serious: Yes (Hospitalization)
  Sender: FDA-Public Use
  Company Number: 2005BI002649

PATIENT
  Sex: Female

DRUGS (9)
  1. AVONEX [Suspect]
     Indication: MULTIPLE SCLEROSIS
     Dosage: 30 UG; QW; IM
     Route: 030
     Dates: start: 20000601
  2. AVONEX [Suspect]
     Indication: MULTIPLE SCLEROSIS
     Dosage: IM
     Route: 030
  3. THORAZINE [Suspect]
  4. ATIVAN [Concomitant]
  5. MITOPROLOL [Concomitant]
  6. BENAZEPRIL HCL [Concomitant]
  7. REMERON [Concomitant]
  8. CELEBREX [Concomitant]
  9. NEXIUM [Concomitant]

REACTIONS (2)
  - POSTOPERATIVE INFECTION [None]
  - SMALL INTESTINAL OBSTRUCTION [None]
